FAERS Safety Report 20643483 (Version 1)
Quarter: 2022Q1

REPORT INFORMATION
  Report Type: Spontaneous
  Country: BE (occurrence: BE)
  Receive Date: 20220328
  Receipt Date: 20220328
  Transmission Date: 20220423
  Serious: Yes (Hospitalization, Other)
  Sender: FDA-Public Use
  Company Number: BE-SA-2022SA043725

PATIENT
  Age: 36 Year
  Sex: Female

DRUGS (8)
  1. DOXORUBICIN [Suspect]
     Active Substance: DOXORUBICIN
     Indication: Invasive ductal breast carcinoma
     Dosage: 25 MILLIGRAM/SQ. METER, QW
  2. DOXORUBICIN [Suspect]
     Active Substance: DOXORUBICIN
     Indication: Hormone receptor positive HER2 negative breast cancer
  3. DACARBAZINE [Suspect]
     Active Substance: DACARBAZINE
     Indication: Invasive ductal breast carcinoma
     Dosage: 375 MILLIGRAM/SQ. METER, QW
  4. DACARBAZINE [Suspect]
     Active Substance: DACARBAZINE
     Indication: Hormone receptor positive HER2 negative breast cancer
  5. VINBLASTINE SULFATE [Suspect]
     Active Substance: VINBLASTINE SULFATE
     Indication: Invasive ductal breast carcinoma
     Dosage: 6 MILLIGRAM/SQ. METER, QW
  6. VINBLASTINE SULFATE [Suspect]
     Active Substance: VINBLASTINE SULFATE
     Indication: Hormone receptor positive HER2 negative breast cancer
  7. BLEOMYCIN [Suspect]
     Active Substance: BLEOMYCIN SULFATE
     Indication: Hormone receptor positive HER2 negative breast cancer
     Dosage: 10 MILLIGRAM/SQ. METER, QW
  8. BLEOMYCIN [Suspect]
     Active Substance: BLEOMYCIN SULFATE
     Indication: Invasive ductal breast carcinoma

REACTIONS (4)
  - Acute respiratory distress syndrome [Recovered/Resolved]
  - Exposure during pregnancy [Recovered/Resolved]
  - Pneumocystis jirovecii pneumonia [Recovered/Resolved]
  - Pyrexia [Recovered/Resolved]
